FAERS Safety Report 19212669 (Version 2)
Quarter: 2021Q2

REPORT INFORMATION
  Report Type: Spontaneous
  Country: CA (occurrence: CA)
  Receive Date: 20210504
  Receipt Date: 20210518
  Transmission Date: 20210717
  Serious: Yes (Hospitalization, Other)
  Sender: FDA-Public Use
  Company Number: CA-B.I. PHARMACEUTICALS,INC./RIDGEFIELD-2021-BI-100201

PATIENT
  Age: 87 Year
  Sex: Male

DRUGS (2)
  1. TRAJENTA [Suspect]
     Active Substance: LINAGLIPTIN
     Indication: TYPE 2 DIABETES MELLITUS
     Dosage: 5 MG QD
     Route: 048
     Dates: start: 20180928
  2. TRESIBA [Suspect]
     Active Substance: INSULIN DEGLUDEC
     Indication: TYPE 2 DIABETES MELLITUS
     Dosage: 6 UNITS QD
     Route: 058
     Dates: start: 20180928

REACTIONS (5)
  - Hepatic failure [Unknown]
  - Hepatic encephalopathy [Recovering/Resolving]
  - Fall [Unknown]
  - Haematoma [Unknown]
  - Ascites [Unknown]

NARRATIVE: CASE EVENT DATE: 2021
